FAERS Safety Report 17354214 (Version 2)
Quarter: 2020Q1

REPORT INFORMATION
  Report Type: Spontaneous
  Country: US (occurrence: US)
  Receive Date: 20200131
  Receipt Date: 20200330
  Transmission Date: 20200409
  Serious: No
  Sender: FDA-Public Use
  Company Number: US-JNJFOC-20200134356

PATIENT
  Age: 72 Year
  Sex: Female

DRUGS (5)
  1. LISINOPRIL HCTZ [Concomitant]
     Active Substance: HYDROCHLOROTHIAZIDE\LISINOPRIL
     Indication: DIURETIC THERAPY
     Route: 065
  2. KETOCONAZOLE. [Concomitant]
     Active Substance: KETOCONAZOLE
     Indication: PRODUCT USED FOR UNKNOWN INDICATION
     Route: 065
  3. WOMENS ROGAINE [Suspect]
     Active Substance: MINOXIDIL
     Indication: ALOPECIA
     Dosage: 1 ML DROPPER TWICE A DAY-AS DIRECTED
     Route: 061
     Dates: start: 201410, end: 20141011
  4. MOMETASONE [Concomitant]
     Active Substance: MOMETASONE
     Indication: PRODUCT USED FOR UNKNOWN INDICATION
     Route: 061
  5. METOPROLOL. [Concomitant]
     Active Substance: METOPROLOL
     Indication: HYPERTENSION
     Route: 065

REACTIONS (5)
  - Application site scab [Recovering/Resolving]
  - Alopecia [Recovering/Resolving]
  - Contraindicated product administered [Unknown]
  - Application site pain [Recovering/Resolving]
  - Application site exfoliation [Recovering/Resolving]

NARRATIVE: CASE EVENT DATE: 201410
